FAERS Safety Report 8422114-1 (Version None)
Quarter: 2012Q2

REPORT INFORMATION
  Report Type: 
  Country: None (occurrence: None)
  Receive Date: 20120608
  Receipt Date: 20120530
  Transmission Date: 20120825
  Serious: Yes (Life-Threatening)
  Sender: FDA-Public Use
  Company Number: AR-ROCHE-1074608

PATIENT
  Sex: Female
  Weight: 60 kg

DRUGS (7)
  1. VALSARTAN [Concomitant]
     Indication: HYPERTENSION
  2. ACTEMRA [Suspect]
     Indication: RHEUMATOID ARTHRITIS
     Route: 042
     Dates: start: 20120427
  3. CEFTRIAXONE [Concomitant]
     Indication: PNEUMONIA PRIMARY ATYPICAL
     Route: 042
     Dates: start: 20120528
  4. AMLODIPINE [Concomitant]
     Indication: HYPERTENSION
  5. CLARITHROMYCIN [Concomitant]
     Indication: PNEUMONIA PRIMARY ATYPICAL
     Route: 048
     Dates: start: 20120528
  6. FOLIC ACID [Concomitant]
     Indication: TOXICITY TO VARIOUS AGENTS
  7. CLONAZEPAM [Concomitant]
     Indication: INSOMNIA

REACTIONS (1)
  - ACUTE RESPIRATORY FAILURE [None]
